FAERS Safety Report 7873236 (Version 3)
Quarter: 2013Q1

REPORT INFORMATION
  Report Type: Spontaneous
  Country: GB (occurrence: None)
  Receive Date: 20110304
  Receipt Date: 20121214
  Transmission Date: 20140127
  Serious: Yes (Congenital Anomaly)
  Sender: FDA-Public Use
  Company Number: 2011MA001685

PATIENT
  Sex: Female

DRUGS (5)
  1. ACETAMINOPHEN\CODEINE PHOSPHATE [Suspect]
     Indication: PAIN
     Dosage: 2 DF;PRN;TRPL
     Route: 064
     Dates: start: 20090106
  2. OMEPRAZOLE [Suspect]
     Indication: FOETAL EXPOSURE DURING PREGNANCY
     Dosage: 20 MG;QD;TRPL
     Route: 064
     Dates: start: 20081016
  3. HYDROXOCOBALAMIN HYDROCHLORIDE [Suspect]
     Indication: FOETAL EXPOSURE DURING PREGNANCY
     Dosage: 3 DF;QM;TRPL
     Route: 064
     Dates: start: 20091216, end: 20101223
  4. PREGABALIN [Suspect]
     Indication: FOETAL EXPOSURE DURING PREGNANCY
     Dosage: 2 DF;BID;TRPL
     Route: 064
     Dates: start: 20100815, end: 20101223
  5. FOLIC ACID [Suspect]
     Indication: FOETAL EXPOSURE DURING PREGNANCY
     Dosage: 1 DF;QD;TRPL
     Route: 064
     Dates: start: 200905, end: 20101223

REACTIONS (9)
  - Forceps delivery [None]
  - Developmental hip dysplasia [None]
  - Maternal drugs affecting foetus [None]
  - Pregnancy [None]
  - Maternal exposure during pregnancy [None]
  - Pelvic pain [None]
  - Haemorrhage in pregnancy [None]
  - Postpartum disorder [None]
  - Infection [None]
